FAERS Safety Report 20323724 (Version 1)
Quarter: 2022Q1

REPORT INFORMATION
  Report Type: Report from Study
  Country: CA (occurrence: CA)
  Receive Date: 20220111
  Receipt Date: 20220111
  Transmission Date: 20220423
  Serious: Yes (Other)
  Sender: FDA-Public Use
  Company Number: CA-PFIZER INC-202200003242

PATIENT
  Age: 56 Year
  Sex: Male

DRUGS (9)
  1. RITUXIMAB [Suspect]
     Active Substance: RITUXIMAB
     Indication: Glomerulonephritis membranous
     Dosage: UNK
     Route: 042
  2. ROBAXACET [Suspect]
     Active Substance: ACETAMINOPHEN\METHOCARBAMOL
     Indication: Back pain
     Dosage: 500 MG
     Route: 065
  3. BENADRYL [Concomitant]
     Active Substance: DIPHENHYDRAMINE HYDROCHLORIDE
     Indication: Premedication
     Dosage: 50 MG
     Route: 048
  4. EZETIMIBE [Concomitant]
     Active Substance: EZETIMIBE
  5. FUROSEMIDE [Concomitant]
     Active Substance: FUROSEMIDE
     Route: 065
  6. PERINDOPRIL [Concomitant]
     Active Substance: PERINDOPRIL
  7. ROSUVASTATIN [Concomitant]
     Active Substance: ROSUVASTATIN
     Route: 058
  8. SOLU-MEDROL [Concomitant]
     Active Substance: METHYLPREDNISOLONE SODIUM SUCCINATE
     Indication: Premedication
     Dosage: 100 MG
     Route: 042
  9. TYLENOL [Concomitant]
     Active Substance: ACETAMINOPHEN
     Indication: Premedication
     Dosage: 312.5 MG
     Route: 048

REACTIONS (14)
  - Angina pectoris [Unknown]
  - Anxiety [Unknown]
  - Blister [Unknown]
  - Blood pressure diastolic abnormal [Unknown]
  - Blood pressure diastolic decreased [Unknown]
  - Chest pain [Unknown]
  - Dyspnoea [Unknown]
  - Heart rate decreased [Unknown]
  - Paraesthesia [Unknown]
  - Pruritus [Unknown]
  - Rash [Unknown]
  - Rash erythematous [Unknown]
  - Tension [Unknown]
  - Off label use [Unknown]
